FAERS Safety Report 23760544 (Version 3)
Quarter: 2024Q2

REPORT INFORMATION
  Report Type: Spontaneous
  Country: US (occurrence: US)
  Receive Date: 20240419
  Receipt Date: 20240614
  Transmission Date: 20240716
  Serious: Yes (Hospitalization, Other)
  Sender: FDA-Public Use
  Company Number: US-ALK-ABELLO A/S-2024AA001696

PATIENT

DRUGS (31)
  1. FRAXINUS AMERICANA POLLEN [Suspect]
     Active Substance: FRAXINUS AMERICANA POLLEN
     Indication: Rhinitis allergic
     Dosage: UNK
     Route: 058
     Dates: start: 20231102
  2. BETULA PENDULA POLLEN [Suspect]
     Active Substance: BETULA PENDULA POLLEN
     Indication: Rhinitis allergic
     Dosage: UNK
     Route: 058
     Dates: start: 20231102
  3. ACER NEGUNDO POLLEN [Suspect]
     Active Substance: ACER NEGUNDO POLLEN
     Indication: Rhinitis allergic
     Dosage: UNK
     Route: 058
     Dates: start: 20231102
  4. ULMUS CRASSIFOLIA POLLEN [Suspect]
     Active Substance: ULMUS CRASSIFOLIA POLLEN
     Indication: Rhinitis allergic
     Dosage: UNK
     Route: 058
     Dates: start: 20231102
  5. DERMATOPHAGOIDES FARINAE [Suspect]
     Active Substance: DERMATOPHAGOIDES FARINAE
     Indication: Rhinitis allergic
     Dosage: UNK
     Route: 058
     Dates: start: 20231102
  6. DERMATOPHAGOIDES PTERONYSSINUS [Suspect]
     Active Substance: DERMATOPHAGOIDES PTERONYSSINUS
     Indication: Rhinitis allergic
     Dosage: UNK ALLERGY UNITS
     Route: 058
     Dates: start: 20231102
  7. QUERCUS ALBA POLLEN [Suspect]
     Active Substance: QUERCUS ALBA POLLEN
     Indication: Rhinitis allergic
     Dosage: UNK
     Route: 058
     Dates: start: 20231102
  8. PLATANUS OCCIDENTALIS POLLEN [Suspect]
     Active Substance: PLATANUS OCCIDENTALIS POLLEN
     Indication: Rhinitis allergic
     Dosage: UNK
     Route: 058
     Dates: start: 20231102
  9. CARYA OVATA POLLEN [Suspect]
     Active Substance: CARYA OVATA POLLEN
     Indication: Rhinitis allergic
     Dosage: UNK
     Route: 058
     Dates: start: 20231102
  10. ARTEMISIA VULGARIS POLLEN [Suspect]
     Active Substance: ARTEMISIA VULGARIS POLLEN
     Indication: Rhinitis allergic
     Dosage: UNK
     Route: 058
     Dates: start: 20231102
  11. MORUS RUBRA POLLEN [Suspect]
     Active Substance: MORUS RUBRA POLLEN
     Indication: Rhinitis allergic
     Dosage: UNK
     Route: 058
     Dates: start: 20231102
  12. AMARANTHUS RETROFLEXUS POLLEN [Suspect]
     Active Substance: AMARANTHUS RETROFLEXUS POLLEN
     Indication: Rhinitis allergic
     Dosage: UNK
     Route: 058
     Dates: start: 20231102
  13. PLANTAGO LANCEOLATA POLLEN [Suspect]
     Active Substance: PLANTAGO LANCEOLATA POLLEN
     Indication: Rhinitis allergic
     Dosage: UNK
     Route: 058
     Dates: start: 20231102
  14. AMBROSIA ARTEMISIIFOLIA POLLEN [Suspect]
     Active Substance: AMBROSIA ARTEMISIIFOLIA POLLEN
     Indication: Rhinitis allergic
     Dosage: UNK
     Route: 058
     Dates: start: 20231102
  15. RUMEX ACETOSELLA POLLEN [Suspect]
     Active Substance: RUMEX ACETOSELLA POLLEN
     Indication: Rhinitis allergic
     Dosage: UNK
     Route: 058
     Dates: start: 20231102
  16. PHLEUM PRATENSE POLLEN [Suspect]
     Active Substance: PHLEUM PRATENSE POLLEN
     Indication: Rhinitis allergic
     Dosage: UNK
     Route: 058
     Dates: start: 20231102
  17. CYNODON DACTYLON POLLEN [Suspect]
     Active Substance: CYNODON DACTYLON POLLEN
     Indication: Rhinitis allergic
     Dosage: UNK
     Route: 058
     Dates: start: 20231102
  18. STERILE DILUENT FOR ALLERGENIC EXTRACT NOS [Suspect]
     Active Substance: ALBUMIN HUMAN OR GLYCERIN OR PHENOL
     Indication: Rhinitis allergic
     Dosage: UNK
     Route: 058
     Dates: start: 20231102
  19. STERILE DILUENT FOR ALLERGENIC EXTRACT NOS [Suspect]
     Active Substance: ALBUMIN HUMAN OR GLYCERIN OR PHENOL
     Dosage: UNK
     Route: 058
     Dates: start: 20231102
  20. BREO ELLIPTA [Concomitant]
     Active Substance: FLUTICASONE FUROATE\VILANTEROL TRIFENATATE
  21. MONTELUKAST [Concomitant]
     Active Substance: MONTELUKAST SODIUM
  22. ALBUTEROL [Concomitant]
     Active Substance: ALBUTEROL
  23. CETIRIZINE [Concomitant]
     Active Substance: CETIRIZINE HYDROCHLORIDE
  24. FLUTICASONE [Concomitant]
     Active Substance: FLUTICASONE
     Route: 045
  25. PANTOPRAZOLE [Concomitant]
     Active Substance: PANTOPRAZOLE
  26. PRIMIDONE [Concomitant]
     Active Substance: PRIMIDONE
  27. SERTRALINE [Concomitant]
     Active Substance: SERTRALINE HYDROCHLORIDE
  28. BUSPIRONE [Concomitant]
     Active Substance: BUSPIRONE HYDROCHLORIDE
  29. SPIRONOLACTONE [Concomitant]
     Active Substance: SPIRONOLACTONE
  30. HYDROCHLOROTHIAZIDE\VALSARTAN [Concomitant]
     Active Substance: HYDROCHLOROTHIAZIDE\VALSARTAN
  31. ATORVASTATIN [Concomitant]
     Active Substance: ATORVASTATIN

REACTIONS (1)
  - Anaphylactic shock [Recovered/Resolved]

NARRATIVE: CASE EVENT DATE: 20240409
